FAERS Safety Report 5285294-5 (Version None)
Quarter: 2007Q2

REPORT INFORMATION
  Report Type: 
  Country: None (occurrence: None)
  Receive Date: 20070403
  Receipt Date: 20070330
  Transmission Date: 20071010
  Serious: Yes (Other)
  Sender: FDA-Public Use
  Company Number: GB-BOEHRINGER INGELHEIM PHARMACEUTICALS, INC.-2007-UK-01065UK

PATIENT
  Age: 45 Year
  Sex: Male

DRUGS (3)
  1. PRAMIPEXOLE DIHYDROCHLORIDE [Suspect]
     Route: 048
     Dates: start: 20061020, end: 20061219
  2. CABERGOLINE [Suspect]
     Route: 048
     Dates: start: 20061020
  3. SELEGILINE HCL [Concomitant]
     Dates: start: 20061020

REACTIONS (2)
  - GAMBLING [None]
  - PERSONALITY CHANGE [None]
